FAERS Safety Report 22335688 (Version 1)
Quarter: 2023Q2

REPORT INFORMATION
  Report Type: Spontaneous
  Country: ES (occurrence: None)
  Receive Date: 20230518
  Receipt Date: 20230518
  Transmission Date: 20230722
  Serious: Yes (Hospitalization, Other)
  Sender: FDA-Public Use
  Company Number: ES-ROCHE-3350096

PATIENT
  Age: 94 Year
  Sex: Male

DRUGS (19)
  1. RIVOTRIL [Suspect]
     Active Substance: CLONAZEPAM
     Indication: Agitation
     Dosage: 1 MILLIGRAM IN 24 HOUR, ACCORDING TO ELECTRONIC CARD, SINCE 19/APR/2014 PREVIOUSLY 0-0-0.5
     Route: 048
     Dates: start: 2022, end: 20230418
  2. RIVOTRIL [Suspect]
     Active Substance: CLONAZEPAM
     Dosage: 2 MG 2 MILLIGRAM IN 24 HOUR, 0-0-1
     Route: 048
     Dates: start: 20230419
  3. OMEPRAZOLE [Suspect]
     Active Substance: OMEPRAZOLE
     Indication: Product used for unknown indication
     Route: 065
  4. QUETIAPINE [Suspect]
     Active Substance: QUETIAPINE
     Indication: Product used for unknown indication
     Route: 048
     Dates: start: 20230208
  5. BUPRENORPHINE [Suspect]
     Active Substance: BUPRENORPHINE
     Indication: Pain
     Dosage: 20 MILLIGRAM IN 48 HOUR, ACCORDING TO E-CARD, 35MCG EVERY 72H
     Route: 062
     Dates: start: 20230419
  6. ZALDIAR [Suspect]
     Active Substance: ACETAMINOPHEN\TRAMADOL HYDROCHLORIDE
     Indication: Pain
     Dosage: 1 DOSAGE FORM IN 8 HOUR // 3 DOSAGE FORM
     Route: 048
     Dates: start: 2022, end: 20230407
  7. ZALDIAR [Suspect]
     Active Substance: ACETAMINOPHEN\TRAMADOL HYDROCHLORIDE
     Dosage: 2 DOSAGE FOR IN, 2-2-2
     Route: 065
     Dates: start: 20230408, end: 20230424
  8. HALOPERIDOL [Suspect]
     Active Substance: HALOPERIDOL
     Indication: Agitation
     Dosage: 50 DROP IN 24 HOUR; 0-050 (5-10-35 AND 5-101-50)
     Route: 048
     Dates: start: 20230419, end: 20230424
  9. EPLERENONE [Suspect]
     Active Substance: EPLERENONE
     Indication: Product used for unknown indication
     Route: 065
  10. FUROSEMIDE [Suspect]
     Active Substance: FUROSEMIDE
     Indication: Product used for unknown indication
     Route: 065
  11. EDOXABAN TOSYLATE [Suspect]
     Active Substance: EDOXABAN TOSYLATE
     Indication: Product used for unknown indication
     Route: 065
  12. METOPROLOL [Suspect]
     Active Substance: METOPROLOL
     Indication: Product used for unknown indication
     Dosage: 1-0-0.5
     Route: 065
  13. DUTASTERIDE\TAMSULOSIN [Suspect]
     Active Substance: DUTASTERIDE\TAMSULOSIN
     Indication: Product used for unknown indication
     Dosage: 0.5/0.4 MG
     Route: 065
  14. LEVOTHYROXINE SODIUM [Suspect]
     Active Substance: LEVOTHYROXINE SODIUM
     Indication: Product used for unknown indication
     Dosage: FASTING TABLET
     Route: 065
  15. CALCIFEDIOL [Suspect]
     Active Substance: CALCIFEDIOL
     Indication: Product used for unknown indication
     Dosage: AMPOULE
     Route: 065
  16. METAMIZOLE MAGNESIUM [Suspect]
     Active Substance: METAMIZOLE MAGNESIUM
     Indication: Product used for unknown indication
     Route: 065
  17. MOVICOL [Suspect]
     Active Substance: POLYETHYLENE GLYCOL 3350\POTASSIUM CHLORIDE\SODIUM BICARBONATE\SODIUM CHLORIDE
     Indication: Product used for unknown indication
     Route: 065
  18. MOVICOL [Suspect]
     Active Substance: POLYETHYLENE GLYCOL 3350\POTASSIUM CHLORIDE\SODIUM BICARBONATE\SODIUM CHLORIDE
     Route: 065
  19. ACETAMINOPHEN [Suspect]
     Active Substance: ACETAMINOPHEN
     Indication: Product used for unknown indication
     Route: 065
     Dates: start: 20150210

REACTIONS (5)
  - Depressed level of consciousness [Recovered/Resolved]
  - Pneumonia aspiration [Recovering/Resolving]
  - Acute kidney injury [Unknown]
  - Urinary tract infection [Unknown]
  - Toxicity to various agents [Unknown]

NARRATIVE: CASE EVENT DATE: 20230423
